FAERS Safety Report 9719288 (Version 2)
Quarter: 2013Q4

REPORT INFORMATION
  Report Type: Report from Study
  Country: US (occurrence: US)
  Receive Date: 20131127
  Receipt Date: 20131217
  Transmission Date: 20140711
  Serious: Yes (Death)
  Sender: FDA-Public Use
  Company Number: PHEH2013US024676

PATIENT
  Age: 86 Year
  Sex: Female
  Weight: 44.9 kg

DRUGS (1)
  1. TOBI [Suspect]
     Dosage: 5 ML, BID
     Route: 055
     Dates: start: 20130523

REACTIONS (2)
  - Death [Fatal]
  - Alopecia [Unknown]
